FAERS Safety Report 5554384-1 (Version None)
Quarter: 2007Q4

REPORT INFORMATION
  Report Type: 
  Country: None (occurrence: None)
  Receive Date: 20071213
  Receipt Date: 20070726
  Transmission Date: 20080405
  Serious: No
  Sender: FDA-Public Use
  Company Number: US-AMGEN-KDL234991

PATIENT
  Sex: Female
  Weight: 87.2 kg

DRUGS (15)
  1. ENBREL [Suspect]
     Indication: PSORIATIC ARTHROPATHY
     Route: 058
     Dates: start: 20070712
  2. CORTICOSTEROIDS [Suspect]
     Dates: start: 20070710
  3. SULFASALAZINE [Concomitant]
     Dates: start: 20050101
  4. ERGOCALCIFEROL [Concomitant]
     Dates: start: 20070507
  5. AZULFIDINE EN-TABS [Concomitant]
     Dates: start: 20050101
  6. SINGULAIR [Concomitant]
  7. SKELAXIN [Concomitant]
  8. XALATAN [Concomitant]
  9. ALBUTEROL [Concomitant]
  10. CALCIUM WITH VITAMIN D [Concomitant]
  11. COREG [Concomitant]
  12. LASIX [Concomitant]
  13. LIPITOR [Concomitant]
  14. NEXIUM [Concomitant]
  15. EZETIMIBE [Concomitant]

REACTIONS (3)
  - ERYTHEMA [None]
  - RASH ERYTHEMATOUS [None]
  - RASH MACULAR [None]
